FAERS Safety Report 20101723 (Version 1)
Quarter: 2021Q4

REPORT INFORMATION
  Report Type: Spontaneous
  Country: US (occurrence: None)
  Receive Date: 20211123
  Receipt Date: 20211123
  Transmission Date: 20220303
  Serious: Yes (Other)
  Sender: FDA-Public Use
  Company Number: US-MLMSERVICE-20211104-3204755-1

PATIENT
  Age: 58 Year
  Sex: Female

DRUGS (2)
  1. CISPLATIN [Suspect]
     Active Substance: CISPLATIN
     Indication: Metastasis
     Route: 033
  2. CISPLATIN [Suspect]
     Active Substance: CISPLATIN
     Indication: Epithelioid mesothelioma

REACTIONS (5)
  - Ureteric stenosis [Recovered/Resolved]
  - Hydronephrosis [Recovered/Resolved]
  - Anuria [Recovered/Resolved]
  - Acute kidney injury [Recovered/Resolved]
  - Ureteric obstruction [Recovered/Resolved]
